FAERS Safety Report 7044682-7 (Version None)
Quarter: 2010Q4

REPORT INFORMATION
  Report Type: 
  Country: None (occurrence: None)
  Receive Date: 20101014
  Receipt Date: 20101008
  Transmission Date: 20110411
  Serious: Yes (Hospitalization)
  Sender: FDA-Public Use
  Company Number: FR-SANOFI-AVENTIS-2010SA061078

PATIENT
  Age: 4 Month
  Sex: Male
  Weight: 3.85 kg

DRUGS (2)
  1. FUROSEMIDE [Suspect]
     Indication: BRONCHOPULMONARY DYSPLASIA
     Dosage: DOSE:10 MILLIGRAM(S)/MILLILITRE
     Route: 048
     Dates: start: 20100826, end: 20100826
  2. ALDACTONE [Concomitant]
     Indication: BRONCHOPULMONARY DYSPLASIA
     Route: 048

REACTIONS (3)
  - INCORRECT DOSE ADMINISTERED [None]
  - MEDICATION ERROR [None]
  - NO ADVERSE EVENT [None]
